FAERS Safety Report 6828251-7 (Version None)
Quarter: 2010Q3

REPORT INFORMATION
  Report Type: 
  Country: None (occurrence: None)
  Receive Date: 20100709
  Receipt Date: 20100630
  Transmission Date: 20110219
  Serious: Yes (Hospitalization)
  Sender: FDA-Public Use
  Company Number: JP-ROCHE-680700

PATIENT
  Sex: Female

DRUGS (13)
  1. TOCILIZUMAB [Suspect]
     Indication: RHEUMATOID ARTHRITIS
     Route: 041
     Dates: start: 20091020, end: 20091020
  2. TOCILIZUMAB [Suspect]
     Route: 041
     Dates: start: 20091117, end: 20091117
  3. TOCILIZUMAB [Suspect]
     Route: 041
     Dates: start: 20091215, end: 20091215
  4. METOLATE [Suspect]
     Indication: RHEUMATOID ARTHRITIS
     Dosage: NOTE: MONDAY AND TUESDAY
     Route: 048
  5. PREDONINE [Concomitant]
     Route: 048
  6. VOLTAREN [Concomitant]
     Route: 048
  7. TAGAMET [Concomitant]
     Dosage: FORM: PERORAL AGENT
     Route: 048
  8. APLACE [Concomitant]
     Dosage: FORM: PERORAL AGENT
     Route: 048
  9. EVISTA [Concomitant]
     Dosage: DRUG NAME: EVISTA TAB 60MG
     Route: 048
  10. CELCOX [Concomitant]
     Route: 048
  11. FOLIAMIN [Concomitant]
     Route: 048
  12. KETOPROFEN [Concomitant]
     Dosage: FORM: TAPE, NOTE: PROPERLY DOSAGE ADJUSTED
     Route: 061
  13. MEDROL [Concomitant]
     Route: 048
     Dates: start: 20100414

REACTIONS (3)
  - CELLULITIS [None]
  - SEPSIS [None]
  - SEPTIC SHOCK [None]
